FAERS Safety Report 22601627 (Version 4)
Quarter: 2024Q3

REPORT INFORMATION
  Report Type: Spontaneous
  Country: JP (occurrence: JP)
  Receive Date: 20230614
  Receipt Date: 20240904
  Transmission Date: 20241017
  Serious: Yes (Death, Hospitalization, Other)
  Sender: BRISTOL MYERS SQUIBB
  Company Number: JP-BRISTOL-MYERS SQUIBB COMPANY-2023-080834

PATIENT
  Age: 69 Year
  Sex: Male

DRUGS (2)
  1. YERVOY [Suspect]
     Active Substance: IPILIMUMAB
     Indication: Non-small cell lung cancer
     Route: 041
  2. OPDIVO [Suspect]
     Active Substance: NIVOLUMAB
     Indication: Non-small cell lung cancer

REACTIONS (12)
  - Malaise [Unknown]
  - Immune-mediated enterocolitis [Unknown]
  - Diarrhoea [Unknown]
  - Hepatitis [Unknown]
  - Renal disorder [Unknown]
  - Condition aggravated [Unknown]
  - Decreased appetite [Unknown]
  - Gait disturbance [Unknown]
  - Sepsis [Unknown]
  - Immune-mediated renal disorder [Unknown]
  - Immune-mediated adverse reaction [Fatal]
  - Glomerulonephritis rapidly progressive [Unknown]

NARRATIVE: CASE EVENT DATE: 20220314
